FAERS Safety Report 8565018-6 (Version None)
Quarter: 2012Q3

REPORT INFORMATION
  Report Type: 
  Country: None (occurrence: None)
  Receive Date: 20120803
  Receipt Date: 20120720
  Transmission Date: 20120928
  Serious: No
  Sender: FDA-Public Use
  Company Number: US-PFIZER INC-2012185320

PATIENT
  Age: 80 Year
  Sex: Female

DRUGS (1)
  1. EPIPEN [Suspect]
     Indication: HYPERSENSITIVITY
     Dosage: 0.3 MG, ONCE
     Route: 030

REACTIONS (2)
  - PRODUCT QUALITY ISSUE [None]
  - INJECTION SITE PAIN [None]
